FAERS Safety Report 11920422 (Version 2)
Quarter: 2016Q1

REPORT INFORMATION
  Report Type: Spontaneous
  Country: JP (occurrence: JP)
  Receive Date: 20160115
  Receipt Date: 20160310
  Transmission Date: 20160526
  Serious: Yes (Hospitalization)
  Sender: FDA-Public Use
  Company Number: JP-UCBSA-2015039386

PATIENT
  Age: 8 Decade
  Sex: Female

DRUGS (2)
  1. NEUPRO [Suspect]
     Active Substance: ROTIGOTINE
     Indication: PRODUCT USED FOR UNKNOWN INDICATION
     Dosage: 1 MG, ONCE DAILY (QD)
     Route: 062
  2. NEUPRO [Suspect]
     Active Substance: ROTIGOTINE
     Dosage: DOSE INCREASED (DOSE STRENGH: 1 MG)
     Route: 062

REACTIONS (3)
  - Gait disturbance [Unknown]
  - Bladder cancer [Unknown]
  - Coordination abnormal [Unknown]
